FAERS Safety Report 10017216 (Version 1)
Quarter: 2014Q1

REPORT INFORMATION
  Report Type: Spontaneous
  Country: US (occurrence: US)
  Receive Date: 20140318
  Receipt Date: 20140318
  Transmission Date: 20141002
  Serious: No
  Sender: FDA-Public Use
  Company Number: US-ROXANE LABORATORIES, INC.-2014-RO-00430RO

PATIENT
  Age: 81 Year
  Sex: Female

DRUGS (1)
  1. PREDNISONE [Suspect]
     Indication: EMPHYSEMA
     Dosage: 10 MG
     Route: 048

REACTIONS (1)
  - Rash macular [Not Recovered/Not Resolved]
